FAERS Safety Report 7296554-0 (Version None)
Quarter: 2011Q1

REPORT INFORMATION
  Report Type: 
  Country: None (occurrence: None)
  Receive Date: 20110216
  Receipt Date: 20110204
  Transmission Date: 20110831
  Serious: Yes (Hospitalization)
  Sender: FDA-Public Use
  Company Number: PHHY2011US04862

PATIENT
  Sex: Male

DRUGS (4)
  1. RECLAST [Suspect]
     Indication: OSTEOPOROSIS
     Dosage: 5 MG
     Route: 042
     Dates: start: 20101118
  2. VITAMIN D [Concomitant]
     Route: 048
  3. LASIX [Concomitant]
     Indication: OEDEMA
     Dosage: UNK
     Route: 048
  4. CRESTOR [Concomitant]
     Indication: BLOOD CHOLESTEROL INCREASED

REACTIONS (4)
  - CHEST PAIN [None]
  - CARDIAC DISORDER [None]
  - PYREXIA [None]
  - TREMOR [None]
